FAERS Safety Report 21648627 (Version 1)
Quarter: 2022Q4

REPORT INFORMATION
  Report Type: Report from Study
  Country: US (occurrence: US)
  Receive Date: 20221128
  Receipt Date: 20221128
  Transmission Date: 20230112
  Serious: No
  Sender: FDA-Public Use
  Company Number: US-ABBVIE-4177963

PATIENT
  Age: 35 Year
  Sex: Female

DRUGS (1)
  1. RINVOQ [Suspect]
     Active Substance: UPADACITINIB
     Indication: Rheumatoid arthritis
     Route: 048
     Dates: start: 20221010

REACTIONS (5)
  - Genital burning sensation [Unknown]
  - Genital tract inflammation [Unknown]
  - Genital swelling [Unknown]
  - Fungal infection [Unknown]
  - Genital erythema [Unknown]

NARRATIVE: CASE EVENT DATE: 20221013
